FAERS Safety Report 16315928 (Version 2)
Quarter: 2019Q2

REPORT INFORMATION
  Report Type: Spontaneous
  Country: US (occurrence: US)
  Receive Date: 20190515
  Receipt Date: 20190611
  Transmission Date: 20190711
  Serious: No
  Sender: FDA-Public Use
  Company Number: US-SA-2019SA126050

PATIENT
  Age: 28 Year
  Sex: Male

DRUGS (1)
  1. DUPIXENT [Suspect]
     Active Substance: DUPILUMAB
     Indication: DERMATITIS ATOPIC
     Dosage: UNK
     Dates: start: 201812, end: 20190221

REACTIONS (7)
  - Dry skin [Unknown]
  - Pruritus [Unknown]
  - Rash [Unknown]
  - Skin fissures [Unknown]
  - Drug ineffective [Unknown]
  - Pain of skin [Unknown]
  - Skin exfoliation [Unknown]
